FAERS Safety Report 6648312-5 (Version None)
Quarter: 2010Q1

REPORT INFORMATION
  Report Type: 
  Country: None (occurrence: None)
  Receive Date: 20100324
  Receipt Date: 20100317
  Transmission Date: 20100710
  Serious: Yes (Hospitalization)
  Sender: FDA-Public Use
  Company Number: FR-B.I. PHARMACEUTICALS,INC./RIDGEFIELD-2010-FF-00250FF

PATIENT
  Sex: Male

DRUGS (8)
  1. SPIRIVA [Suspect]
     Route: 055
  2. CISPLATIN [Suspect]
     Route: 042
     Dates: start: 20080709, end: 20080910
  3. TAXOTERE [Suspect]
     Route: 042
     Dates: start: 20080709, end: 20080910
  4. INEGY [Suspect]
     Route: 048
  5. COVERSYL [Suspect]
     Route: 048
  6. VASTAREL [Suspect]
     Route: 048
  7. KARDEGIC [Suspect]
     Route: 048
  8. AIROMIR [Suspect]
     Route: 055

REACTIONS (2)
  - GYNAECOMASTIA [None]
  - PRIMARY HYPOGONADISM [None]
